FAERS Safety Report 4952727-0 (Version None)
Quarter: 2006Q1

REPORT INFORMATION
  Report Type: 
  Country: None (occurrence: None)
  Receive Date: 20060320
  Receipt Date: 20040730
  Transmission Date: 20060701
  Serious: Yes (Hospitalization)
  Sender: FDA-Public Use
  Company Number: HQ6315123JAN2003

PATIENT
  Age: 60 Year
  Sex: Male
  Weight: 81.7 kg

DRUGS (12)
  1. MYLOTARG [Suspect]
     Indication: ACUTE MYELOID LEUKAEMIA
     Dosage: 18 MG 1X PER 1 DAY, INTRAVENOUS
     Route: 042
     Dates: start: 20030114, end: 20030114
  2. DIFLUCAN [Concomitant]
  3. VALTREX [Concomitant]
  4. PREVACID [Concomitant]
  5. SOTALOL HCL [Concomitant]
  6. ANUSOL (BISMUTH HYDROXIDE/BISMUTH SUBGALLATE/BORIC ACID/PERUVIAN BALSA [Concomitant]
  7. CITRACAL (CALCIUM CITRATE) [Concomitant]
  8. DILAUDID [Concomitant]
  9. AMBIEN [Concomitant]
  10. REGLAN [Concomitant]
  11. BACTRIM [Concomitant]
  12. LEVAQUIN [Concomitant]

REACTIONS (15)
  - ABDOMINAL PAIN LOWER [None]
  - ABSCESS [None]
  - ANOREXIA [None]
  - ASCITES [None]
  - BLOOD ALKALINE PHOSPHATASE INCREASED [None]
  - BLOOD CULTURE POSITIVE [None]
  - DIPLOPIA [None]
  - FEBRILE NEUTROPENIA [None]
  - GAMMA-GLUTAMYLTRANSFERASE INCREASED [None]
  - HAEMORRHOIDS [None]
  - INFUSION RELATED REACTION [None]
  - PHARYNGOLARYNGEAL PAIN [None]
  - SCAN BONE MARROW ABNORMAL [None]
  - STAPHYLOCOCCAL INFECTION [None]
  - WEIGHT INCREASED [None]
